FAERS Safety Report 6678536-2 (Version None)
Quarter: 2010Q2

REPORT INFORMATION
  Report Type: 
  Country: None (occurrence: None)
  Receive Date: 20100413
  Receipt Date: 20100331
  Transmission Date: 20101027
  Serious: Yes (Other)
  Sender: FDA-Public Use
  Company Number: US-CELGENEUS-163-21880-10040081

PATIENT
  Sex: Male

DRUGS (3)
  1. REVLIMID [Suspect]
     Route: 048
     Dates: start: 20090327
  2. REVLIMID [Suspect]
     Route: 048
     Dates: start: 20081201
  3. REVLIMID [Suspect]
     Route: 048
     Dates: start: 20081201

REACTIONS (2)
  - CATARACT [None]
  - THROMBOSIS [None]
